FAERS Safety Report 13662920 (Version 1)
Quarter: 2017Q2

REPORT INFORMATION
  Report Type: Spontaneous
  Country: FI (occurrence: FI)
  Receive Date: 20170619
  Receipt Date: 20170619
  Transmission Date: 20170830
  Serious: Yes (Hospitalization)
  Sender: FDA-Public Use
  Company Number: FI-ABBVIE-17K-055-2008534-00

PATIENT
  Age: 67 Year
  Sex: Female

DRUGS (1)
  1. HUMIRA [Suspect]
     Active Substance: ADALIMUMAB
     Indication: PSORIASIS
     Route: 058
     Dates: start: 201203, end: 201208

REACTIONS (15)
  - Hypervitaminosis D [Unknown]
  - Hepatitis alcoholic [Recovered/Resolved]
  - Psoriasis [Recovered/Resolved]
  - Lung abscess [Recovered/Resolved]
  - Adrenocortical insufficiency acute [Recovered/Resolved]
  - Hyperparathyroidism primary [Unknown]
  - Hypercalcaemia [Unknown]
  - Osteoporosis [Unknown]
  - Psoriatic arthropathy [Recovering/Resolving]
  - Psoriasis [Recovered/Resolved]
  - Drug ineffective [Recovered/Resolved]
  - Pneumonia [Recovered/Resolved]
  - Pemphigoid [Recovering/Resolving]
  - Psoriasis [Recovered/Resolved]
  - Psoriasis [Recovered/Resolved]

NARRATIVE: CASE EVENT DATE: 201208
